FAERS Safety Report 4980263-4 (Version None)
Quarter: 2006Q2

REPORT INFORMATION
  Report Type: 
  Country: None (occurrence: None)
  Receive Date: 20060424
  Receipt Date: 20060419
  Transmission Date: 20061013
  Serious: Yes (Death, Other)
  Sender: FDA-Public Use
  Company Number: PHEH2006US05173

PATIENT
  Age: 57 Year
  Sex: Female

DRUGS (1)
  1. CLOZARIL [Suspect]
     Indication: SCHIZOPHRENIA
     Dosage: UNK, UNK

REACTIONS (5)
  - BREAST CANCER [None]
  - CONFUSIONAL STATE [None]
  - MEAN CELL VOLUME ABNORMAL [None]
  - PERNICIOUS ANAEMIA [None]
  - VITAMIN B12 DECREASED [None]
